FAERS Safety Report 6074712-0 (Version None)
Quarter: 2009Q1

REPORT INFORMATION
  Report Type: 
  Country: None (occurrence: None)
  Receive Date: 20090212
  Receipt Date: 20090210
  Transmission Date: 20090719
  Serious: Yes (Death, Disabling)
  Sender: FDA-Public Use
  Company Number: JP-SANOFI-SYNTHELABO-F01200801018

PATIENT
  Sex: Male
  Weight: 53 kg

DRUGS (4)
  1. FLUOROURACIL [Suspect]
     Dosage: UNK
     Route: 042
     Dates: start: 20071123, end: 20071124
  2. AVASTIN [Suspect]
     Route: 042
     Dates: start: 20071123, end: 20071123
  3. CALCIUM LEVOFOLINATE [Suspect]
     Dosage: UNK
     Route: 041
     Dates: start: 20071123, end: 20071124
  4. ELPLAT [Suspect]
     Indication: RECTAL CANCER RECURRENT
     Dosage: UNK
     Route: 041
     Dates: start: 20071123, end: 20071123

REACTIONS (2)
  - DISEASE PROGRESSION [None]
  - ILEAL PERFORATION [None]
